FAERS Safety Report 18871461 (Version 1)
Quarter: 2021Q1

REPORT INFORMATION
  Report Type: Spontaneous
  Country: US (occurrence: US)
  Receive Date: 20210209
  Receipt Date: 20210209
  Transmission Date: 20210420
  Serious: Yes (Hospitalization, Other)
  Sender: FDA-Public Use
  Company Number: None

PATIENT
  Age: 35 Year
  Sex: Female
  Weight: 54.9 kg

DRUGS (4)
  1. CIAMEMAZINE [Concomitant]
  2. VENLAFAXINE [Concomitant]
     Active Substance: VENLAFAXINE HYDROCHLORIDE
  3. PRAZEPAM [Concomitant]
     Active Substance: PRAZEPAM
  4. VALPROIC ACID. [Suspect]
     Active Substance: VALPROIC ACID
     Indication: DEPRESSION

REACTIONS (6)
  - Headache [None]
  - Tremor [None]
  - Diarrhoea [None]
  - Vomiting [None]
  - Feeling abnormal [None]
  - Vertigo [None]
